FAERS Safety Report 17426165 (Version 6)
Quarter: 2021Q4

REPORT INFORMATION
  Report Type: Spontaneous
  Country: IN (occurrence: IN)
  Receive Date: 20200217
  Receipt Date: 20211011
  Transmission Date: 20220303
  Serious: Yes (Other)
  Sender: FDA-Public Use
  Company Number: IN-PFIZER INC-2019297017

PATIENT
  Age: 43 Year
  Sex: Female

DRUGS (15)
  1. AROMASIN [Suspect]
     Active Substance: EXEMESTANE
     Indication: Breast cancer female
     Dosage: 25 MG, ONCE A DA
     Route: 048
     Dates: start: 20190313
  2. AROMASIN [Suspect]
     Active Substance: EXEMESTANE
     Indication: Breast cancer metastatic
  3. PAN [Concomitant]
     Dosage: UNK
  4. SHELCAL [CALCIUM CARBONATE;COLECALCIFEROL] [Concomitant]
     Dosage: UNK, TWICE IN A DAY 90 DAYS
     Route: 048
  5. CHOLECALCIFEROL [Concomitant]
     Active Substance: CHOLECALCIFEROL
     Dosage: ONCE EVERY 2 WEEKS 180 DAYS
     Route: 048
  6. LEVOTHYROXINE [Concomitant]
     Active Substance: LEVOTHYROXINE
     Dosage: ONCE IN A DAY 360 DAYS
     Route: 048
  7. LACOSAMIDE [Concomitant]
     Active Substance: LACOSAMIDE
     Dosage: UNK, TWICE A DAY
     Route: 048
  8. LEVETIRACETAM [Concomitant]
     Active Substance: LEVETIRACETAM
     Dosage: 750 MG, 2X/DAY
  9. DEXAMETHASONE [Concomitant]
     Active Substance: DEXAMETHASONE
     Dosage: 2 MG, 1X/DAY
  10. Pan DSR [Concomitant]
     Dosage: BEFORE BREAKFAST UNTIL TAB DEXA WAS TAKEN
  11. ZEVIT [ASCORBIC ACID;BIOTIN;CALCIUM PANTOTHENATE;FOLIC ACID;NICOTINAMI [Concomitant]
     Dosage: 1 DF, 1X/DAY (ONCE DAILY-1 MONTH)
  12. AVASTIN [Concomitant]
     Active Substance: BEVACIZUMAB
     Dosage: UNK
  13. FUROSEMIDE\SPIRONOLACTONE [Concomitant]
     Active Substance: FUROSEMIDE\SPIRONOLACTONE
     Dosage: 50 MG, 1X/DAY 60 DAYS
     Route: 048
  14. PANTOPRAZOLE SODIUM [Concomitant]
     Active Substance: PANTOPRAZOLE SODIUM
     Dosage: 40 MG, 1X/DAY 30 DAYS
     Route: 048
  15. CALCIUM [Concomitant]
     Active Substance: CALCIUM
     Dosage: UNK

REACTIONS (14)
  - Loss of consciousness [Unknown]
  - Seizure [Unknown]
  - Adjacent segment degeneration [Unknown]
  - Amenorrhoea [Unknown]
  - Malaise [Unknown]
  - Neoplasm progression [Unknown]
  - Dysarthria [Unknown]
  - Nausea [Recovered/Resolved]
  - Vomiting [Recovered/Resolved]
  - Decreased appetite [Unknown]
  - Head discomfort [Unknown]
  - White matter lesion [Unknown]
  - Oedema [Unknown]
  - Magnetic resonance imaging head abnormal [Unknown]

NARRATIVE: CASE EVENT DATE: 20190101
